FAERS Safety Report 14994622 (Version 1)
Quarter: 2018Q2

REPORT INFORMATION
  Report Type: Report from Study
  Country: US (occurrence: US)
  Receive Date: 20180611
  Receipt Date: 20180611
  Transmission Date: 20180711
  Serious: Yes (Hospitalization, Other)
  Sender: FDA-Public Use
  Company Number: PHHY2018US007018

PATIENT
  Age: 17 Year
  Sex: Male
  Weight: 56.3 kg

DRUGS (7)
  1. FLUVACCIN [Concomitant]
     Active Substance: INFLUENZA VIRUS VACCINE
     Dosage: UNK
     Dates: start: 20160818
  2. FLUVACCIN [Concomitant]
     Active Substance: INFLUENZA VIRUS VACCINE
     Indication: IMMUNISATION
     Dosage: UNK
     Route: 065
     Dates: start: 20141015
  3. FLUVACCIN [Concomitant]
     Active Substance: INFLUENZA VIRUS VACCINE
     Dosage: UNK
     Route: 065
     Dates: start: 20151028
  4. FLUVACCIN [Concomitant]
     Active Substance: INFLUENZA VIRUS VACCINE
     Dosage: UNK
     Route: 065
     Dates: start: 20161013
  5. TOBI PODHALER [Suspect]
     Active Substance: TOBRAMYCIN
     Dosage: 112 MG (28 MG), BID (28 DAYS ON AND 28 DAYS OFF)
     Route: 055
     Dates: start: 20180517
  6. TOBI PODHALER [Suspect]
     Active Substance: TOBRAMYCIN
     Indication: INFECTIVE PULMONARY EXACERBATION OF CYSTIC FIBROSIS
     Dosage: 112 MG (28 MG), BID (28 DAYS ON AND 28 DAYS OFF)
     Route: 055
     Dates: start: 20180507, end: 20180517
  7. FLUVACCIN [Concomitant]
     Active Substance: INFLUENZA VIRUS VACCINE
     Dosage: UNK
     Route: 065
     Dates: start: 20171010

REACTIONS (16)
  - Sputum discoloured [Unknown]
  - Infective pulmonary exacerbation of cystic fibrosis [Unknown]
  - Pyrexia [Unknown]
  - Pseudomonas infection [Unknown]
  - Decreased appetite [Unknown]
  - Respiratory distress [Unknown]
  - Hypoxia [Unknown]
  - Stenotrophomonas infection [Unknown]
  - Weight decreased [Unknown]
  - Wheezing [Unknown]
  - Dyspnoea [Unknown]
  - Scedosporium infection [Unknown]
  - Cough [Not Recovered/Not Resolved]
  - Rhinorrhoea [Unknown]
  - Staphylococcal infection [Unknown]
  - Tachycardia [Unknown]

NARRATIVE: CASE EVENT DATE: 20180517
